FAERS Safety Report 8556692 (Version 3)
Quarter: 2013Q3

REPORT INFORMATION
  Report Type: Spontaneous
  Country: US (occurrence: US)
  Receive Date: 20120510
  Receipt Date: 20130715
  Transmission Date: 20140515
  Serious: Yes (Other)
  Sender: FDA-Public Use
  Company Number: US-RB-039868-12

PATIENT
  Age: 26 Year
  Sex: Male

DRUGS (3)
  1. SUBOXONE FILM [Suspect]
     Indication: DRUG DEPENDENCE
     Dosage: SUBOXONE FILM
     Route: 060
     Dates: start: 201204, end: 201204
  2. SUBOXONE FILM [Suspect]
     Dosage: SUBOXONE FILM; 1/2 OF A STRIP
     Route: 060
     Dates: start: 201204
  3. TRAZODONE [Concomitant]
     Indication: INSOMNIA
     Dosage: TAKING EVERY HOUR OF SLEEP
     Route: 048
     Dates: start: 201205

REACTIONS (8)
  - Suicidal ideation [Recovered/Resolved]
  - Convulsion [Recovered/Resolved]
  - Overdose [Recovered/Resolved]
  - Vomiting [Recovered/Resolved]
  - Decreased appetite [Recovered/Resolved]
  - Fluid intake reduced [Recovered/Resolved]
  - Insomnia [Recovered/Resolved]
  - Wrong technique in drug usage process [Not Recovered/Not Resolved]
